FAERS Safety Report 5903200-4 (Version None)
Quarter: 2008Q3

REPORT INFORMATION
  Report Type: 
  Country: None (occurrence: None)
  Receive Date: 20080930
  Receipt Date: 20080925
  Transmission Date: 20090109
  Serious: Yes (Death, Hospitalization)
  Sender: FDA-Public Use
  Company Number: ES-BRISTOL-MYERS SQUIBB COMPANY-14347330

PATIENT
  Age: 42 Year
  Sex: Male

DRUGS (5)
  1. HYDREA [Suspect]
     Indication: CHRONIC MYELOID LEUKAEMIA
     Dosage: DF = CAPSULE
     Route: 048
     Dates: start: 20080701, end: 20080801
  2. RAMIPRIL [Concomitant]
  3. TRANGOREX [Concomitant]
  4. ASPIRIN [Concomitant]
     Dosage: 1 DF = 100 UNIT NOT SPECIFIED.
  5. METFORMIN HCL [Concomitant]

REACTIONS (5)
  - CARDIOPULMONARY FAILURE [None]
  - DIARRHOEA [None]
  - LEFT VENTRICULAR FAILURE [None]
  - MALIGNANT NEOPLASM PROGRESSION [None]
  - RENAL FAILURE ACUTE [None]
